FAERS Safety Report 6371926-7 (Version None)
Quarter: 2009Q3

REPORT INFORMATION
  Report Type: 
  Country: None (occurrence: None)
  Receive Date: 20090916
  Receipt Date: 20090916
  Transmission Date: 20100115
  Serious: Yes (Hospitalization)
  Sender: FDA-Public Use
  Company Number: None

PATIENT
  Age: 47 Year
  Sex: Male
  Weight: 78 kg

DRUGS (1)
  1. DIVALPROEX SODIUM [Suspect]
     Indication: DRUG TOXICITY
     Dosage: PO
     Route: 048
     Dates: start: 20090401, end: 20090915

REACTIONS (5)
  - AMMONIA INCREASED [None]
  - CONFUSIONAL STATE [None]
  - CONVULSION [None]
  - MENTAL STATUS CHANGES [None]
  - THROMBOCYTOPENIA [None]
